FAERS Safety Report 23712880 (Version 3)
Quarter: 2024Q2

REPORT INFORMATION
  Report Type: Spontaneous
  Country: JP (occurrence: JP)
  Receive Date: 20240405
  Receipt Date: 20240506
  Transmission Date: 20240717
  Serious: Yes (Other)
  Sender: FDA-Public Use
  Company Number: JP-PFIZER INC-PV202400043932

PATIENT
  Sex: Female

DRUGS (3)
  1. INLYTA [Suspect]
     Active Substance: AXITINIB
     Indication: Renal cell carcinoma
     Dosage: 10 MG
     Route: 048
     Dates: end: 202204
  2. INLYTA [Suspect]
     Active Substance: AXITINIB
     Dosage: 2 MG, DAILY
     Route: 048
     Dates: start: 202204, end: 20240401
  3. KEYTRUDA [Suspect]
     Active Substance: PEMBROLIZUMAB
     Dosage: UNK
     Dates: end: 20240202

REACTIONS (3)
  - Type 1 diabetes mellitus [Unknown]
  - Hepatic function abnormal [Unknown]
  - Off label use [Unknown]

NARRATIVE: CASE EVENT DATE: 20240401
